FAERS Safety Report 9722836 (Version 4)
Quarter: 2017Q3

REPORT INFORMATION
  Report Type: Report from Study
  Country: US (occurrence: US)
  Receive Date: 20131202
  Receipt Date: 20170804
  Transmission Date: 20171128
  Serious: Yes (Hospitalization, Other)
  Sender: FDA-Public Use
  Company Number: US-SANOFI-AVENTIS-2013SA081280

PATIENT
  Age: 64 Year
  Sex: Female

DRUGS (2)
  1. AUBAGIO [Suspect]
     Active Substance: TERIFLUNOMIDE
     Indication: MULTIPLE SCLEROSIS
     Dosage: PRODUCT START DATE:-01 OR 02 JUNE 2013
     Route: 048
     Dates: start: 20130621, end: 20170316
  2. AUBAGIO [Suspect]
     Active Substance: TERIFLUNOMIDE
     Indication: MULTIPLE SCLEROSIS
     Dosage: PRODUCT START DATE:-01 OR 02 JUNE 2013
     Route: 048
     Dates: start: 2017

REACTIONS (10)
  - Pulmonary congestion [Recovered/Resolved]
  - Limb operation [Unknown]
  - Pneumonia [Recovered/Resolved]
  - Renal failure [Unknown]
  - Dyspnoea [Recovered/Resolved]
  - Weight increased [Unknown]
  - Sinus headache [Recovered/Resolved]
  - Nasopharyngitis [Recovered/Resolved]
  - Musculoskeletal stiffness [Unknown]
  - Alopecia [Unknown]

NARRATIVE: CASE EVENT DATE: 2013
